FAERS Safety Report 7805514-X (Version None)
Quarter: 2011Q4

REPORT INFORMATION
  Report Type: 
  Country: None (occurrence: None)
  Receive Date: 20111010
  Receipt Date: 20111003
  Transmission Date: 20120403
  Serious: Yes (Other)
  Sender: FDA-Public Use
  Company Number: PHHY2011JP46344

PATIENT
  Sex: Male

DRUGS (7)
  1. NOVORAPID [Concomitant]
     Dosage: 10 IU, UNK
     Route: 058
     Dates: start: 20090224
  2. LEVEMIR [Concomitant]
     Dosage: 7 IU, UNK
     Route: 058
     Dates: start: 20090224
  3. LORCAM [Concomitant]
     Indication: METASTATIC RENAL CELL CARCINOMA
     Dosage: 12 MG, UNK
     Route: 048
     Dates: start: 20110330
  4. AFINITOR [Suspect]
     Indication: METASTATIC RENAL CELL CARCINOMA
     Dosage: 10 MG,
     Route: 048
     Dates: start: 20110406, end: 20110629
  5. AMLODIPINE [Concomitant]
     Dosage: 5 MG, UNK
     Route: 048
     Dates: start: 20090624
  6. LEVOTHYROXINE SODIUM [Concomitant]
     Dosage: 100 MG, UNK
     Route: 048
     Dates: start: 20100121
  7. SELBEX [Concomitant]
     Dosage: 150 MG, UNK
     Route: 048
     Dates: start: 20110330

REACTIONS (5)
  - NEOPLASM MALIGNANT [None]
  - BONE MARROW FAILURE [None]
  - NEOPLASM PROGRESSION [None]
  - BLOOD GLUCOSE INCREASED [None]
  - PANCYTOPENIA [None]
